FAERS Safety Report 8439307-X (Version None)
Quarter: 2012Q2

REPORT INFORMATION
  Report Type: 
  Country: None (occurrence: None)
  Receive Date: 20120615
  Receipt Date: 20120612
  Transmission Date: 20120825
  Serious: Yes (Other)
  Sender: FDA-Public Use
  Company Number: PHEH2012US010271

PATIENT
  Sex: Female
  Weight: 59.864 kg

DRUGS (5)
  1. ALBUTEROL [Concomitant]
     Indication: ASTHMA
  2. GILENYA [Suspect]
     Dosage: 0.5 MG, QD
     Route: 048
     Dates: end: 20120514
  3. NUVARING [Concomitant]
     Indication: CONTRACEPTION
     Dates: start: 20110920, end: 20120401
  4. GILENYA [Suspect]
     Indication: MULTIPLE SCLEROSIS
     Dosage: 0.5 MG, QD
     Route: 048
     Dates: start: 20111220
  5. AMBIEN [Concomitant]
     Indication: SLEEP DISORDER
     Dosage: 10 MG, QHS
     Route: 048

REACTIONS (3)
  - ACNE [None]
  - RASH PRURITIC [None]
  - FORMICATION [None]
